FAERS Safety Report 4368424-9 (Version None)
Quarter: 2004Q2

REPORT INFORMATION
  Report Type: 
  Country: None (occurrence: None)
  Receive Date: 20040602
  Receipt Date: 20031119
  Transmission Date: 20050107
  Serious: No
  Sender: FDA-Public Use
  Company Number: US-GLAXOSMITHKLINE-A0440395A

PATIENT
  Age: 20 Year
  Sex: Male

DRUGS (3)
  1. AUGMENTIN [Suspect]
     Indication: BURN INFECTION
     Dosage: 875MG TWICE PER DAY
     Route: 048
     Dates: start: 20031117, end: 20031119
  2. SILVADENE [Concomitant]
  3. CEFTRIAXONE [Concomitant]

REACTIONS (2)
  - BURNING SENSATION [None]
  - RASH PUSTULAR [None]
